FAERS Safety Report 8158167-8 (Version None)
Quarter: 2012Q1

REPORT INFORMATION
  Report Type: 
  Country: None (occurrence: None)
  Receive Date: 20120222
  Receipt Date: 20120213
  Transmission Date: 20120608
  Serious: Yes (Hospitalization)
  Sender: FDA-Public Use
  Company Number: JP-ASTRAZENECA-2012SE11019

PATIENT
  Age: 66 Year
  Sex: Male

DRUGS (11)
  1. SUCRALFATE [Concomitant]
     Route: 065
     Dates: start: 20120206, end: 20120214
  2. OMEPRAZOLE [Suspect]
     Indication: GASTRIC CANCER
     Route: 041
     Dates: start: 20120206, end: 20120213
  3. SUCRALFATE HYDRATE [Concomitant]
     Route: 065
     Dates: start: 20120206, end: 20120214
  4. PREDNISOLONE [Concomitant]
     Route: 065
     Dates: start: 20120213
  5. ALLOID G [Concomitant]
     Route: 065
     Dates: start: 20120206
  6. GLUFAST [Concomitant]
     Indication: DIABETES MELLITUS
     Route: 065
     Dates: end: 20120215
  7. ACTOS [Concomitant]
     Indication: DIABETES MELLITUS
     Route: 065
     Dates: end: 20120215
  8. RABEPRAZOLE SODIUM [Suspect]
     Route: 048
     Dates: start: 20120210, end: 20120213
  9. ROCEPHIN [Suspect]
     Route: 048
     Dates: start: 20120206, end: 20120213
  10. VOGLIBOSE [Concomitant]
     Indication: DIABETES MELLITUS
     Route: 065
     Dates: end: 20120215
  11. ALLEGRA [Concomitant]
     Route: 065
     Dates: start: 20120212

REACTIONS (2)
  - HEPATIC FUNCTION ABNORMAL [None]
  - RASH [None]
